FAERS Safety Report 13471217 (Version 1)
Quarter: 2017Q2

REPORT INFORMATION
  Report Type: Spontaneous
  Country: US (occurrence: US)
  Receive Date: 20170421
  Receipt Date: 20170421
  Transmission Date: 20170830
  Serious: Yes (Hospitalization)
  Sender: FDA-Public Use
  Company Number: None

PATIENT
  Age: 24 Year
  Sex: Female
  Weight: 108 kg

DRUGS (4)
  1. FLUTICASONE PROPIONATE. [Suspect]
     Active Substance: FLUTICASONE PROPIONATE
     Indication: MIDDLE EAR EFFUSION
     Dosage: OTHER STRENGTH:MCG;QUANTITY:1 SPRAY(S);?
     Route: 055
     Dates: start: 20170401, end: 20170417
  2. ZYPREXA [Concomitant]
     Active Substance: OLANZAPINE
  3. CLONOPIN [Concomitant]
     Active Substance: CLONAZEPAM
  4. PROZAC [Concomitant]
     Active Substance: FLUOXETINE HYDROCHLORIDE

REACTIONS (6)
  - Tremor [None]
  - Supraventricular tachycardia [None]
  - Anxiety [None]
  - Depression [None]
  - Syncope [None]
  - Heart rate increased [None]

NARRATIVE: CASE EVENT DATE: 20170409
